FAERS Safety Report 11465428 (Version 12)
Quarter: 2022Q4

REPORT INFORMATION
  Report Type: Spontaneous
  Country: CA (occurrence: None)
  Receive Date: 20150907
  Receipt Date: 20221013
  Transmission Date: 20230113
  Serious: Yes (Death)
  Sender: FDA-Public Use
  Company Number: CA-ROCHE-1630210

PATIENT
  Age: 54 Year
  Sex: Male

DRUGS (77)
  1. CLONAZEPAM [Suspect]
     Active Substance: CLONAZEPAM
     Indication: Bipolar disorder
     Route: 048
  2. CLONAZEPAM [Suspect]
     Active Substance: CLONAZEPAM
     Route: 065
  3. BUPROPION HYDROCHLORIDE [Suspect]
     Active Substance: BUPROPION HYDROCHLORIDE
     Indication: Bipolar disorder
     Route: 065
  4. BUPROPION HYDROCHLORIDE [Suspect]
     Active Substance: BUPROPION HYDROCHLORIDE
     Route: 065
  5. BUPROPION HYDROCHLORIDE [Suspect]
     Active Substance: BUPROPION HYDROCHLORIDE
     Route: 065
  6. BUPROPION HYDROCHLORIDE [Suspect]
     Active Substance: BUPROPION HYDROCHLORIDE
     Route: 048
  7. BUPROPION HYDROCHLORIDE [Suspect]
     Active Substance: BUPROPION HYDROCHLORIDE
     Route: 065
  8. ISENTRESS [Suspect]
     Active Substance: RALTEGRAVIR POTASSIUM
     Indication: HIV infection
     Route: 048
  9. ISENTRESS [Suspect]
     Active Substance: RALTEGRAVIR POTASSIUM
     Route: 065
  10. ISENTRESS [Suspect]
     Active Substance: RALTEGRAVIR POTASSIUM
     Route: 065
  11. ISENTRESS [Suspect]
     Active Substance: RALTEGRAVIR POTASSIUM
     Route: 065
  12. ISENTRESS [Suspect]
     Active Substance: RALTEGRAVIR POTASSIUM
     Route: 048
  13. KALETRA [Suspect]
     Active Substance: LOPINAVIR\RITONAVIR
     Indication: HIV infection
     Route: 048
  14. KALETRA [Suspect]
     Active Substance: LOPINAVIR\RITONAVIR
     Route: 065
  15. LAMIVUDINE [Suspect]
     Active Substance: LAMIVUDINE
     Indication: HIV infection
     Route: 005
  16. LAMIVUDINE [Suspect]
     Active Substance: LAMIVUDINE
     Indication: Bipolar disorder
     Route: 065
  17. LAMIVUDINE [Suspect]
     Active Substance: LAMIVUDINE
     Route: 048
  18. LAMIVUDINE [Suspect]
     Active Substance: LAMIVUDINE
     Route: 065
  19. QUETIAPINE [Suspect]
     Active Substance: QUETIAPINE
     Indication: Bipolar disorder
     Route: 048
  20. QUETIAPINE [Suspect]
     Active Substance: QUETIAPINE
     Route: 048
  21. REYATAZ [Suspect]
     Active Substance: ATAZANAVIR SULFATE
     Indication: Product used for unknown indication
     Route: 065
  22. REYATAZ [Suspect]
     Active Substance: ATAZANAVIR SULFATE
     Route: 065
  23. SERTRALINE HYDROCHLORIDE [Suspect]
     Active Substance: SERTRALINE HYDROCHLORIDE
     Indication: Bipolar disorder
     Route: 048
  24. SERTRALINE HYDROCHLORIDE [Suspect]
     Active Substance: SERTRALINE HYDROCHLORIDE
     Indication: HIV infection
     Route: 065
  25. SERTRALINE HYDROCHLORIDE [Suspect]
     Active Substance: SERTRALINE HYDROCHLORIDE
     Route: 065
  26. SERTRALINE HYDROCHLORIDE [Suspect]
     Active Substance: SERTRALINE HYDROCHLORIDE
     Route: 065
  27. SUSTIVA [Suspect]
     Active Substance: EFAVIRENZ
     Indication: HIV infection
     Route: 048
  28. SUSTIVA [Suspect]
     Active Substance: EFAVIRENZ
     Route: 048
  29. SUSTIVA [Suspect]
     Active Substance: EFAVIRENZ
     Route: 065
  30. SUSTIVA [Suspect]
     Active Substance: EFAVIRENZ
     Route: 048
  31. SUSTIVA [Suspect]
     Active Substance: EFAVIRENZ
     Route: 065
  32. SUSTIVA [Suspect]
     Active Substance: EFAVIRENZ
     Route: 048
  33. SUSTIVA [Suspect]
     Active Substance: EFAVIRENZ
     Route: 065
  34. SUSTIVA [Suspect]
     Active Substance: EFAVIRENZ
     Route: 065
  35. SUSTIVA [Suspect]
     Active Substance: EFAVIRENZ
     Route: 048
  36. SUSTIVA [Suspect]
     Active Substance: EFAVIRENZ
     Route: 048
  37. VALPROIC ACID [Suspect]
     Active Substance: VALPROIC ACID
     Indication: Bipolar disorder
     Route: 065
  38. ZOPICLONE [Suspect]
     Active Substance: ZOPICLONE
     Indication: Bipolar disorder
     Route: 048
  39. ZOPICLONE [Suspect]
     Active Substance: ZOPICLONE
     Route: 065
  40. ZOPICLONE [Suspect]
     Active Substance: ZOPICLONE
     Route: 065
  41. ATAZANAVIR SULFATE [Suspect]
     Active Substance: ATAZANAVIR SULFATE
     Indication: HIV infection
     Route: 048
  42. ATAZANAVIR SULFATE [Suspect]
     Active Substance: ATAZANAVIR SULFATE
     Indication: Bipolar disorder
     Route: 005
  43. ATAZANAVIR SULFATE [Suspect]
     Active Substance: ATAZANAVIR SULFATE
     Route: 065
  44. QUETIAPINE FUMARATE [Suspect]
     Active Substance: QUETIAPINE FUMARATE
     Indication: Bipolar disorder
     Route: 048
  45. QUETIAPINE FUMARATE [Suspect]
     Active Substance: QUETIAPINE FUMARATE
     Indication: HIV infection
     Route: 065
  46. QUETIAPINE FUMARATE [Suspect]
     Active Substance: QUETIAPINE FUMARATE
     Route: 048
  47. RALTEGRAVIR POTASSIUM [Suspect]
     Active Substance: RALTEGRAVIR POTASSIUM
     Indication: HIV infection
     Route: 048
  48. RALTEGRAVIR POTASSIUM [Suspect]
     Active Substance: RALTEGRAVIR POTASSIUM
     Route: 065
  49. RALTEGRAVIR POTASSIUM [Suspect]
     Active Substance: RALTEGRAVIR POTASSIUM
     Route: 065
  50. RALTEGRAVIR POTASSIUM [Suspect]
     Active Substance: RALTEGRAVIR POTASSIUM
     Route: 048
  51. RALTEGRAVIR POTASSIUM [Suspect]
     Active Substance: RALTEGRAVIR POTASSIUM
     Route: 048
  52. RALTEGRAVIR POTASSIUM [Suspect]
     Active Substance: RALTEGRAVIR POTASSIUM
     Route: 048
  53. SERTRALINE [Suspect]
     Active Substance: SERTRALINE HYDROCHLORIDE
     Indication: Bipolar disorder
     Route: 065
  54. SERTRALINE [Suspect]
     Active Substance: SERTRALINE HYDROCHLORIDE
     Route: 065
  55. SERTRALINE [Suspect]
     Active Substance: SERTRALINE HYDROCHLORIDE
     Route: 048
  56. SERTRALINE [Suspect]
     Active Substance: SERTRALINE HYDROCHLORIDE
     Route: 065
  57. BUPROPION [Suspect]
     Active Substance: BUPROPION
     Indication: Bipolar disorder
     Route: 048
  58. BUPROPION [Suspect]
     Active Substance: BUPROPION
     Route: 065
  59. BUPROPION [Suspect]
     Active Substance: BUPROPION
     Route: 065
  60. BUPROPION [Suspect]
     Active Substance: BUPROPION
     Route: 048
  61. BUPROPION [Suspect]
     Active Substance: BUPROPION
     Route: 065
  62. ATAZANAVIR [Suspect]
     Active Substance: ATAZANAVIR
     Indication: HIV infection
     Route: 065
  63. ATAZANAVIR [Suspect]
     Active Substance: ATAZANAVIR
     Route: 048
  64. ATAZANAVIR [Suspect]
     Active Substance: ATAZANAVIR
     Indication: HIV infection
     Route: 005
  65. ATAZANAVIR [Suspect]
     Active Substance: ATAZANAVIR
     Route: 065
  66. ATAZANAVIR [Suspect]
     Active Substance: ATAZANAVIR
     Route: 048
  67. ATAZANAVIR [Suspect]
     Active Substance: ATAZANAVIR
     Route: 065
  68. RALTEGRAVIR [Suspect]
     Active Substance: RALTEGRAVIR
     Indication: HIV infection
     Route: 048
  69. RALTEGRAVIR [Suspect]
     Active Substance: RALTEGRAVIR
     Route: 065
  70. EFAVIRENZ [Suspect]
     Active Substance: EFAVIRENZ
     Indication: HIV infection
     Route: 048
  71. LOPINAVIR\RITONAVIR [Suspect]
     Active Substance: LOPINAVIR\RITONAVIR
     Indication: HIV infection
     Route: 065
  72. LOPINAVIR\RITONAVIR [Suspect]
     Active Substance: LOPINAVIR\RITONAVIR
     Route: 048
  73. RIVOTRIL [Suspect]
     Active Substance: CLONAZEPAM
     Indication: Bipolar disorder
     Route: 048
  74. ENFUVIRTIDE [Concomitant]
     Active Substance: ENFUVIRTIDE
     Indication: HIV infection
     Route: 065
  75. ENFUVIRTIDE [Concomitant]
     Active Substance: ENFUVIRTIDE
     Route: 065
  76. ENFUVIRTIDE [Concomitant]
     Active Substance: ENFUVIRTIDE
     Route: 058
  77. ENFUVIRTIDE [Concomitant]
     Active Substance: ENFUVIRTIDE
     Route: 048

REACTIONS (5)
  - Depression [Fatal]
  - Drug interaction [Fatal]
  - Loss of personal independence in daily activities [Fatal]
  - Off label use [Fatal]
  - Prescribed overdose [Fatal]
